FAERS Safety Report 24889305 (Version 1)
Quarter: 2025Q1

REPORT INFORMATION
  Report Type: Spontaneous
  Country: US (occurrence: US)
  Receive Date: 20250127
  Receipt Date: 20250127
  Transmission Date: 20250408
  Serious: No
  Sender: PRASCO
  Company Number: US-Prasco Laboratories-PRAS20241320

PATIENT
  Age: 72 Year
  Sex: Female

DRUGS (2)
  1. ESTRADIOL [Suspect]
     Active Substance: ESTRADIOL
     Indication: Atrophic vulvovaginitis
     Route: 067
     Dates: start: 202411, end: 20250117
  2. ESTRADIOL [Suspect]
     Active Substance: ESTRADIOL
     Indication: Vaginal prolapse

REACTIONS (6)
  - Tinnitus [Not Recovered/Not Resolved]
  - Alopecia [Not Recovered/Not Resolved]
  - Product use in unapproved indication [None]
  - Off label use [None]
  - Wrong technique in product usage process [None]
  - Product dose omission in error [None]

NARRATIVE: CASE EVENT DATE: 20241001
